FAERS Safety Report 5690337-0 (Version None)
Quarter: 2008Q2

REPORT INFORMATION
  Report Type: 
  Country: None (occurrence: None)
  Receive Date: 20080401
  Receipt Date: 20020619
  Transmission Date: 20081010
  Serious: Yes (Death)
  Sender: FDA-Public Use
  Company Number: US-ROCHE-315703

PATIENT
  Age: 32 Year
  Sex: Male

DRUGS (1)
  1. ROCEPHIN [Suspect]
     Indication: DRUG USE FOR UNKNOWN INDICATION
     Dosage: DRUG THERAPY FOR THE ADMINISTRATION ERROR
     Route: 054
     Dates: start: 20020205

REACTIONS (2)
  - DEATH [None]
  - DRUG ADMINISTRATION ERROR [None]
